FAERS Safety Report 9726057 (Version 2)
Quarter: 2014Q1

REPORT INFORMATION
  Report Type: Spontaneous
  Country: CA (occurrence: CA)
  Receive Date: 20131203
  Receipt Date: 20140108
  Transmission Date: 20141002
  Serious: Yes (Other)
  Sender: FDA-Public Use
  Company Number: CA-SA-2013SA121180

PATIENT
  Age: 52 Year
  Sex: Female
  Weight: 115 kg

DRUGS (4)
  1. ELOXATIN [Suspect]
     Indication: COLON CANCER
     Route: 065
     Dates: start: 20130205, end: 20130517
  2. BENADRYL [Concomitant]
     Route: 048
  3. DEXAMETHASONE [Concomitant]
  4. ONDANSETRON [Concomitant]
     Route: 048

REACTIONS (7)
  - Heart rate increased [Recovered/Resolved]
  - Myalgia [Recovered/Resolved]
  - Blood pressure increased [Recovered/Resolved]
  - Chest pain [Recovered/Resolved]
  - Flushing [Recovered/Resolved]
  - Nausea [Recovered/Resolved]
  - Rash macular [Recovered/Resolved]
